FAERS Safety Report 6408604-1 (Version None)
Quarter: 2009Q4

REPORT INFORMATION
  Report Type: 
  Country: None (occurrence: None)
  Receive Date: 20091021
  Receipt Date: 20091009
  Transmission Date: 20100525
  Serious: Yes (Hospitalization)
  Sender: FDA-Public Use
  Company Number: FR-AVENTIS-200913779FR

PATIENT
  Age: 74 Year
  Sex: Male

DRUGS (8)
  1. RIFADINE                           /00146901/ [Suspect]
     Route: 048
     Dates: start: 20090201, end: 20090206
  2. FUCIDINE                           /00065702/ [Suspect]
     Indication: STAPHYLOCOCCAL OSTEOMYELITIS
     Route: 048
     Dates: start: 20090201, end: 20090206
  3. FLECAINIDE ACETATE [Concomitant]
     Indication: ARRHYTHMIA
  4. CORDARONE [Concomitant]
     Indication: ARRHYTHMIA
     Dates: end: 20090206
  5. KARDEGIC                           /00002703/ [Concomitant]
     Indication: ARRHYTHMIA
  6. PARACETAMOL [Concomitant]
     Indication: DRUG USE FOR UNKNOWN INDICATION
  7. DAPTOMYCINE [Concomitant]
     Dates: start: 20090101, end: 20090201
  8. GENTAMICINE [Concomitant]
     Dates: start: 20090101, end: 20090201

REACTIONS (4)
  - DERMATITIS EXFOLIATIVE [None]
  - HYPERSENSITIVITY [None]
  - JAUNDICE CHOLESTATIC [None]
  - SKIN REACTION [None]
